FAERS Safety Report 17037100 (Version 8)
Quarter: 2020Q1

REPORT INFORMATION
  Report Type: Spontaneous
  Country: US (occurrence: US)
  Receive Date: 20191115
  Receipt Date: 20200221
  Transmission Date: 20200409
  Serious: No
  Sender: FDA-Public Use
  Company Number: US-PFIZER INC-2019489771

PATIENT
  Age: 70 Year
  Sex: Female
  Weight: 117.91 kg

DRUGS (8)
  1. NARDIL [Suspect]
     Active Substance: PHENELZINE SULFATE
     Indication: DEPRESSION
     Dosage: 15 MG, 4X/DAY (4 HRS APART)
     Route: 048
     Dates: start: 1999
  2. BABY ASPIRIN [Concomitant]
     Active Substance: ASPIRIN
     Dosage: UNK, 1X/DAY
  3. HCTZ [Concomitant]
     Active Substance: HYDROCHLOROTHIAZIDE
     Dosage: 2 DF, DAILY
     Dates: start: 2011
  4. HCTZ [Concomitant]
     Active Substance: HYDROCHLOROTHIAZIDE
     Dosage: 25 MG, 1X/DAY
  5. LAMOTRIGINE. [Concomitant]
     Active Substance: LAMOTRIGINE
     Dosage: 200 MG, 4X/DAY
  6. CLONAZEPAM. [Concomitant]
     Active Substance: CLONAZEPAM
     Dosage: 2 MG, 4X/DAY
  7. CELEBREX [Suspect]
     Active Substance: CELECOXIB
     Indication: KNEE ARTHROPLASTY
     Dosage: 1 DF, 1X/DAY
     Route: 048
     Dates: start: 2011
  8. CELEBREX [Suspect]
     Active Substance: CELECOXIB
     Indication: ARTHRALGIA
     Dosage: 15 MG, UNK (5X DAY)
     Dates: start: 2011

REACTIONS (5)
  - Panic reaction [Recovered/Resolved]
  - Anxiety [Unknown]
  - Intentional product use issue [Unknown]
  - Product use issue [Unknown]
  - Off label use [Unknown]
